FAERS Safety Report 18551589 (Version 3)
Quarter: 2020Q4

REPORT INFORMATION
  Report Type: Report from Study
  Country: CO (occurrence: CO)
  Receive Date: 20201126
  Receipt Date: 20201202
  Transmission Date: 20210114
  Serious: Yes (Life-Threatening, Hospitalization, Other)
  Sender: FDA-Public Use
  Company Number: CO-SHIRE-CO202029879

PATIENT
  Age: 3 Year
  Sex: Male
  Weight: 10 kg

DRUGS (2)
  1. HUMAN IMMUNOGLOBULIN; HYALURONIDASE [Suspect]
     Active Substance: HUMAN IMMUNOGLOBULIN G\HYALURONIDASE RECOMBINANT HUMAN
     Indication: PRIMARY IMMUNODEFICIENCY SYNDROME
     Dosage: 10 GRAM, 1X A MONTH
     Route: 058
     Dates: start: 20200709
  2. HUMAN IMMUNOGLOBULIN; HYALURONIDASE [Suspect]
     Active Substance: HUMAN IMMUNOGLOBULIN G\HYALURONIDASE RECOMBINANT HUMAN
     Dosage: 10 GRAM
     Route: 058

REACTIONS (10)
  - General physical health deterioration [Unknown]
  - Pyrexia [Unknown]
  - Endocarditis bacterial [Recovering/Resolving]
  - Cardiac valve disease [Unknown]
  - Cardiac failure high output [Unknown]
  - Hypotension [Unknown]
  - Splenomegaly [Unknown]
  - Blood pressure abnormal [Unknown]
  - Chronic kidney disease [Unknown]
  - Pleural effusion [Unknown]

NARRATIVE: CASE EVENT DATE: 20200907
